FAERS Safety Report 22590334 (Version 1)
Quarter: 2023Q2

REPORT INFORMATION
  Report Type: Spontaneous
  Country: IT (occurrence: IT)
  Receive Date: 20230612
  Receipt Date: 20230612
  Transmission Date: 20230722
  Serious: Yes (Other)
  Sender: FDA-Public Use
  Company Number: IT-002147023-NVSC2023IT100790

PATIENT
  Age: 51 Year
  Sex: Female

DRUGS (1)
  1. EVEROLIMUS [Suspect]
     Active Substance: EVEROLIMUS
     Indication: Product used for unknown indication
     Dosage: 10 MILLIGRAM, QD, 10 MG, QD
     Route: 065
     Dates: start: 202301

REACTIONS (6)
  - Rheumatoid arthritis [Unknown]
  - Breast cancer metastatic [Unknown]
  - Blood cholesterol increased [Unknown]
  - Transaminases increased [Unknown]
  - Anaemia [Unknown]
  - Blood glucose increased [Unknown]
